FAERS Safety Report 21112297 (Version 3)
Quarter: 2022Q3

REPORT INFORMATION
  Report Type: Report from Study
  Country: TW (occurrence: TW)
  Receive Date: 20220721
  Receipt Date: 20220823
  Transmission Date: 20221026
  Serious: Yes (Hospitalization)
  Sender: FDA-Public Use
  Company Number: TW-ASTELLAS-2022US026059

PATIENT
  Age: 75 Year
  Sex: Male
  Weight: 64.4 kg

DRUGS (22)
  1. ENFORTUMAB VEDOTIN [Suspect]
     Active Substance: ENFORTUMAB VEDOTIN
     Indication: Transitional cell carcinoma
     Dosage: 0.75 MG/KG, CYCLIC (ON DAYS 1 AND 8 OF EVERY 3-WEEK CYCLE)
     Route: 042
     Dates: start: 20210610
  2. PEMBROLIZUMAB [Suspect]
     Active Substance: PEMBROLIZUMAB
     Indication: Transitional cell carcinoma
     Route: 042
     Dates: start: 20210610
  3. NORVASC [Concomitant]
     Active Substance: AMLODIPINE BESYLATE
     Indication: Hypertension
     Dosage: UNK, UNKNOWN FREQ.
     Route: 048
     Dates: start: 20210416
  4. MICARDIS [Concomitant]
     Active Substance: TELMISARTAN
     Indication: Hypertension
     Dosage: UNK, UNKNOWN FREQ.
     Route: 048
     Dates: start: 20210416
  5. ACTEIN [Concomitant]
     Indication: Cough
     Dosage: UNK UNK, UNKNOWN FREQ.
     Route: 048
     Dates: start: 20210706
  6. DEXTROMETHORPHAN HYDROBROMIDE\LYSOZYME HYDROCHLORIDE\POTASSIUM CRESOLS [Concomitant]
     Active Substance: DEXTROMETHORPHAN HYDROBROMIDE\LYSOZYME HYDROCHLORIDE\POTASSIUM CRESOLSULFONATE
     Indication: Cough
     Dosage: UNK, UNKNOWN FREQ.
     Route: 048
     Dates: start: 20210706
  7. FAMOTIDINE [Concomitant]
     Active Substance: FAMOTIDINE
     Indication: Gastric ulcer
     Dosage: UNK UNK, UNKNOWN FREQ.
     Route: 048
     Dates: start: 20210706
  8. PRIMPERAN [Concomitant]
     Active Substance: METOCLOPRAMIDE HYDROCHLORIDE
     Indication: Gastric ulcer
     Dosage: UNK, UNKNOWN FREQ.
     Route: 048
     Dates: start: 20210706
  9. SENNA LEAVES [Concomitant]
     Active Substance: SENNOSIDES A AND B
     Indication: Constipation
     Dosage: UNK, UNKNOWN FREQ.
     Route: 048
     Dates: start: 20210706
  10. Novamin [Concomitant]
     Indication: Nausea
     Dosage: UNK, UNKNOWN FREQ.
     Route: 048
     Dates: start: 20210621
  11. DENOSIN [Concomitant]
     Indication: Rash erythematous
     Dosage: UNK, UNKNOWN FREQ.
     Route: 048
     Dates: start: 20210923
  12. ICHDERM [Concomitant]
     Indication: Rash erythematous
     Dosage: UNK, UNKNOWN FREQ.
     Route: 061
     Dates: start: 20210923
  13. VISTARIL [Concomitant]
     Active Substance: HYDROXYZINE PAMOATE
     Indication: Rash erythematous
     Dosage: UNK, UNKNOWN FREQ.
     Route: 048
     Dates: start: 20210923
  14. Convulex [Concomitant]
     Indication: Peripheral sensory neuropathy
     Dosage: UNK, UNKNOWN FREQ.
     Route: 048
     Dates: start: 20211007
  15. CHLORPHENIRAMINE [Concomitant]
     Active Substance: CHLORPHENIRAMINE
     Indication: Prophylaxis
     Dosage: UNK, UNKNOWN FREQ.
     Route: 030
     Dates: start: 20220218
  16. BENAMINE [Concomitant]
     Indication: Rash erythematous
     Dosage: UNK, UNKNOWN FREQ.
     Route: 048
     Dates: start: 20220210
  17. EUROTECH UREA [Concomitant]
     Indication: Rash erythematous
     Dosage: UNK, UNKNOWN FREQ.
     Route: 061
     Dates: start: 20211223
  18. COLIAN [Concomitant]
     Indication: Anxiety
     Dosage: UNK, UNKNOWN FREQ.
     Route: 048
     Dates: start: 20211202
  19. METHYLCOBALAMIN [Concomitant]
     Active Substance: METHYLCOBALAMIN
     Indication: Peripheral sensory neuropathy
     Dosage: UNK, UNKNOWN FREQ.
     Route: 048
     Dates: start: 20211216
  20. TOPAMAX [Concomitant]
     Active Substance: TOPIRAMATE
     Indication: Peripheral sensory neuropathy
     Dosage: UNK, UNKNOWN FREQ.
     Route: 048
     Dates: start: 20211216
  21. LYRICA [Concomitant]
     Active Substance: PREGABALIN
     Indication: Peripheral sensory neuropathy
     Dosage: UNK, UNKNOWN FREQ.
     Route: 048
     Dates: start: 20220428
  22. MAGNESIUM OXIDE [Concomitant]
     Active Substance: MAGNESIUM OXIDE
     Indication: Constipation
     Dosage: UNK, UNKNOWN FREQ.
     Route: 048
     Dates: start: 20220506

REACTIONS (1)
  - Pancreatitis acute [Recovered/Resolved]

NARRATIVE: CASE EVENT DATE: 20220714
